FAERS Safety Report 6243092 (Version 4)
Quarter: 2012Q4

REPORT INFORMATION
  Report Type: 
  Country: US (occurrence: US)
  Receive Date: 20070207
  Receipt Date: 20121224
  Transmission Date: 20130627
  Serious: Yes (Hospitalization)
  Sender: FDA-Public Use
  Company Number: 2007BI001489

PATIENT
  Age: 26 Year
  Sex: Female

DRUGS (9)
  1. TYSABRI [Suspect]
     Indication: MULTIPLE SCLEROSIS
     Route: 042
     Dates: start: 20061024, end: 20070116
  2. TYSABRI [Suspect]
     Indication: MULTIPLE SCLEROSIS
     Route: 042
     Dates: start: 20120328, end: 20120523
  3. KEPPRA [Concomitant]
  4. FOLIC ACID [Concomitant]
  5. AMBIEN CR [Concomitant]
  6. IV FLUIDS (NOS) [Concomitant]
     Indication: PREMEDICATION
  7. BENADRYL [Concomitant]
     Indication: PREMEDICATION
  8. TORADOL [Concomitant]
     Indication: PREMEDICATION
  9. PROTONIX [Concomitant]
     Indication: PREMEDICATION

REACTIONS (13)
  - Hypersensitivity [Recovered/Resolved]
  - Convulsion [Recovered/Resolved]
  - Confusional state [Unknown]
  - Anaphylactic shock [Recovered/Resolved]
  - Headache [Not Recovered/Not Resolved]
  - Rash [Recovered/Resolved]
  - Pyrexia [Recovered/Resolved]
  - Dyspnoea [Recovered/Resolved]
  - Myalgia [Recovered/Resolved]
  - Balance disorder [Unknown]
  - Vision blurred [Unknown]
  - Disorientation [Unknown]
  - Mental status changes [Unknown]
